FAERS Safety Report 18567243 (Version 1)
Quarter: 2020Q4

REPORT INFORMATION
  Report Type: Spontaneous
  Country: US (occurrence: US)
  Receive Date: 20201201
  Receipt Date: 20201201
  Transmission Date: 20210114
  Serious: No
  Sender: FDA-Public Use
  Company Number: US-VIFOR (INTERNATIONAL) INC.-VIT-2020-11142

PATIENT
  Age: 62 Year

DRUGS (2)
  1. CLONIDINE. [Concomitant]
     Active Substance: CLONIDINE
  2. VELTASSA [Suspect]
     Active Substance: PATIROMER
     Indication: DERMATITIS ATOPIC
     Route: 048
     Dates: start: 20171103

REACTIONS (3)
  - No adverse event [Unknown]
  - Treatment noncompliance [Unknown]
  - Product use in unapproved indication [Unknown]
